FAERS Safety Report 14458866 (Version 17)
Quarter: 2021Q3

REPORT INFORMATION
  Report Type: Report from Study
  Country: DE (occurrence: DE)
  Receive Date: 20180130
  Receipt Date: 20210929
  Transmission Date: 20211014
  Serious: Yes (Other)
  Sender: FDA-Public Use
  Company Number: DE-MYLANLABS-2018M1005245

PATIENT
  Age: 30 Year
  Sex: Male
  Weight: 76 kg

DRUGS (43)
  1. RIBAVIRIN. [Suspect]
     Active Substance: RIBAVIRIN
     Dosage: 800 MG, QD
     Route: 048
     Dates: start: 20120803, end: 20130425
  2. NORVIR [Suspect]
     Active Substance: RITONAVIR
     Indication: HIV INFECTION
     Dosage: 20 MILLIGRAM, QD
     Route: 048
     Dates: end: 2013
  3. COPEGUS [Suspect]
     Active Substance: RIBAVIRIN
     Indication: CHRONIC HEPATITIS C
     Dosage: 1000 MG, QD
     Route: 048
     Dates: start: 20120524, end: 20120802
  4. PEGASYS [Suspect]
     Active Substance: PEGINTERFERON ALFA-2A
     Dosage: 180 MICROGRAM, QW
     Route: 058
     Dates: start: 20120524, end: 20130425
  5. ACC AKUT [Concomitant]
     Active Substance: ACETYLCYSTEINE
     Dosage: 600 MG, UNK (AS NECESSARY)
     Route: 065
     Dates: start: 20130314
  6. AZITHROBETA [Concomitant]
     Active Substance: AZITHROMYCIN
     Indication: PRODUCT USED FOR UNKNOWN INDICATION
     Dosage: 500 MG, QD
     Route: 065
     Dates: start: 20130603, end: 20130605
  7. METAMIZOLE [Concomitant]
     Active Substance: METAMIZOLE
     Dosage: UNK
  8. EMTRICITABINE/TENOFOVIR DISOPROXIL FUMARATE [Suspect]
     Active Substance: EMTRICITABINE\TENOFOVIR DISOPROXIL FUMARATE
     Indication: HIV INFECTION
     Dosage: 200 MG, QD (MOST RECENT DOSE OF 20/JUL/2016)
     Route: 048
     Dates: start: 20100101, end: 20160720
  9. TRUVADA [Suspect]
     Active Substance: EMTRICITABINE\TENOFOVIR DISOPROXIL FUMARATE
     Indication: HIV INFECTION
     Dosage: 200 MILLIGRAM, QD
     Route: 048
     Dates: start: 20100101, end: 20160720
  10. RIBAVIRIN. [Suspect]
     Active Substance: RIBAVIRIN
     Indication: CHRONIC HEPATITIS C
     Dosage: 1000 MG, QD (MOST RECENT DOSE ON 02/AUG/2012)
     Route: 048
     Dates: start: 20120524, end: 20120802
  11. REYATAZ [Suspect]
     Active Substance: ATAZANAVIR SULFATE
     Indication: HEPATITIS C
     Dosage: 800 MILLIGRAM, QD
     Route: 048
     Dates: start: 20120803, end: 20130425
  12. PEGASYS [Suspect]
     Active Substance: PEGINTERFERON ALFA-2A
     Indication: CHRONIC HEPATITIS C
     Dosage: 180 ?G, QD
     Route: 058
     Dates: start: 20120524
  13. CITALOPRAM [Concomitant]
     Active Substance: CITALOPRAM HYDROBROMIDE
     Dosage: 40 MG, UNK
     Route: 065
     Dates: start: 20120621, end: 20130601
  14. AZITHROBETA [Concomitant]
     Active Substance: AZITHROMYCIN
     Indication: PRODUCT USED FOR UNKNOWN INDICATION
     Dosage: 500 MILLIGRAM, QD
     Route: 065
     Dates: start: 20130603, end: 20130605
  15. RIBAVIRIN. [Suspect]
     Active Substance: RIBAVIRIN
     Dosage: 1000 MG, QD CUMULATIVE DOSE TO FIRST REACTION: 103473.69 MG
     Route: 048
     Dates: start: 20120803, end: 20130425
  16. RITONAVIR. [Suspect]
     Active Substance: RITONAVIR
     Indication: HIV INFECTION
     Dosage: 100 MG, QD
     Route: 048
     Dates: start: 20100101, end: 20160720
  17. COPEGUS [Suspect]
     Active Substance: RIBAVIRIN
     Dosage: 800 MG, UNK
     Route: 048
  18. ACC AKUT [Concomitant]
     Active Substance: ACETYLCYSTEINE
     Indication: PRODUCT USED FOR UNKNOWN INDICATION
     Dosage: 600 MG, UNK
     Route: 065
  19. CITALOPRAM [Concomitant]
     Active Substance: CITALOPRAM HYDROBROMIDE
     Dosage: 20 MILLIGRAM, QD
  20. CITALOPRAM [Concomitant]
     Active Substance: CITALOPRAM HYDROBROMIDE
     Dosage: 40 UNK
     Route: 065
  21. EMTRICITABINE/TENOFOVIR DISOPROXIL FUMARATE [Suspect]
     Active Substance: EMTRICITABINE\TENOFOVIR DISOPROXIL FUMARATE
     Dosage: 200 MILLIGRAM, QD
     Route: 048
     Dates: start: 20160720
  22. REYATAZ [Suspect]
     Active Substance: ATAZANAVIR SULFATE
     Indication: HIV INFECTION
     Dosage: 300 MG, QD(CUMULATIVE DOSE TO FIRST REACTION: 262500 MG 300 MG, QD )
     Route: 048
     Dates: start: 20100101, end: 20160720
  23. COPEGUS [Suspect]
     Active Substance: RIBAVIRIN
     Dosage: 800 MG, QD(CUMULATIVE DOSE TO FIRST REACTION: 103473.69 MG 800 MG, QD )
     Route: 048
     Dates: start: 20120803, end: 20130425
  24. BETAGALEN [Concomitant]
     Indication: HEPATITIS C
     Dosage: UNK
     Route: 065
     Dates: start: 20120705
  25. AZITHROBETA [Concomitant]
     Active Substance: AZITHROMYCIN
     Indication: PRODUCT USED FOR UNKNOWN INDICATION
     Dosage: 500 MILLIGRAM, QD
     Dates: start: 20130603, end: 20130605
  26. NORVIR [Suspect]
     Active Substance: RITONAVIR
     Dosage: 80 MILLIGRAM, QD
     Route: 048
     Dates: end: 2013
  27. NORVIR [Suspect]
     Active Substance: RITONAVIR
     Dosage: 100 MILLIGRAM, QD
     Route: 048
     Dates: start: 2013
  28. PEGINTERFERON ALFA?2A. [Suspect]
     Active Substance: PEGINTERFERON ALFA-2A
     Indication: CHRONIC HEPATITIS C
     Dosage: 180 ?G, QW (MOST RECENT DOSE OF 25/APR/2013)
     Route: 058
     Dates: start: 20120524, end: 20130425
  29. TELAPREVIR [Suspect]
     Active Substance: TELAPREVIR
     Indication: CHRONIC HEPATITIS C
     Dosage: 2250 MG, QD (MOST RECENT DOSE OF 16/AUG/2012
     Route: 048
     Dates: start: 20120524, end: 20120816
  30. TRUVADA [Suspect]
     Active Substance: EMTRICITABINE\TENOFOVIR DISOPROXIL FUMARATE
     Dosage: 1 DF, QD (LAST DOSE ON 20?JUL?2016)
     Route: 048
     Dates: start: 20100101
  31. METAMIZOLE [Concomitant]
     Active Substance: METAMIZOLE
     Indication: PRODUCT USED FOR UNKNOWN INDICATION
     Dosage: UNK
     Route: 065
     Dates: start: 20121221
  32. METAMIZOLE [Concomitant]
     Active Substance: METAMIZOLE
     Indication: PRODUCT USED FOR UNKNOWN INDICATION
     Dosage: UNK, PRN
     Route: 048
     Dates: start: 20121221
  33. NORVIR [Suspect]
     Active Substance: RITONAVIR
     Dosage: 100 MILLIGRAM, QD
     Route: 048
     Dates: start: 20160720
  34. REYATAZ [Suspect]
     Active Substance: ATAZANAVIR SULFATE
     Dosage: 1000 MILLIGRAM, QD
     Route: 048
     Dates: start: 20120524, end: 20120802
  35. COPEGUS [Suspect]
     Active Substance: RIBAVIRIN
     Dosage: 800 MILLIGRAM, QD
     Route: 048
     Dates: start: 20120803, end: 20120805
  36. ATAZANAVIR. [Suspect]
     Active Substance: ATAZANAVIR
     Indication: HIV INFECTION
     Dosage: 300 MG, QD
     Route: 048
     Dates: start: 20100101, end: 20160720
  37. COPEGUS [Suspect]
     Active Substance: RIBAVIRIN
     Indication: PRODUCT USED FOR UNKNOWN INDICATION
     Dosage: 800 MILLIGRAM
     Route: 048
  38. CITALOPRAM [Concomitant]
     Active Substance: CITALOPRAM HYDROBROMIDE
     Indication: PRODUCT USED FOR UNKNOWN INDICATION
     Dosage: 20 MG, UNK (UNKNOWN,UNKNOWN,UNKNOWN)
     Route: 065
     Dates: start: 20120621, end: 20130601
  39. CITALOPRAM [Concomitant]
     Active Substance: CITALOPRAM HYDROBROMIDE
     Dosage: 40 MG, UNK
     Route: 065
     Dates: start: 20121220, end: 20130601
  40. EMTRICITABINE/TENOFOVIR DISOPROXIL FUMARATE [Suspect]
     Active Substance: EMTRICITABINE\TENOFOVIR DISOPROXIL FUMARATE
     Dosage: 1000 MILLIGRAM, QD
     Route: 048
     Dates: start: 20120524, end: 20120802
  41. NORVIR [Suspect]
     Active Substance: RITONAVIR
     Dosage: 100 MG, QD (MOST RECENT DOSE OF 20/JUL/2016)
     Route: 048
     Dates: start: 20100101, end: 20160720
  42. COPEGUS [Suspect]
     Active Substance: RIBAVIRIN
     Dosage: 1000 MILLIGRAM, QD
     Route: 048
  43. SUBUTEX [Concomitant]
     Active Substance: BUPRENORPHINE HYDROCHLORIDE
     Indication: PRODUCT USED FOR UNKNOWN INDICATION
     Dosage: 4 MG, UNK
     Route: 065

REACTIONS (23)
  - Oral herpes [Recovered/Resolved]
  - Impaired healing [Recovered/Resolved]
  - Pruritus [Not Recovered/Not Resolved]
  - Wrong dose [Recovered/Resolved]
  - Influenza like illness [Recovered/Resolved]
  - Fatigue [Recovered/Resolved]
  - Laboratory test abnormal [Unknown]
  - Sinusitis [Recovered/Resolved]
  - Withdrawal syndrome [Not Recovered/Not Resolved]
  - Nausea [Not Recovered/Not Resolved]
  - Skin irritation [Not Recovered/Not Resolved]
  - Headache [Recovered/Resolved]
  - Taste disorder [Not Recovered/Not Resolved]
  - Drug dependence [Not Recovered/Not Resolved]
  - Restlessness [Recovered/Resolved]
  - Vertigo [Recovered/Resolved]
  - Dry skin [Not Recovered/Not Resolved]
  - Anaemia [Not Recovered/Not Resolved]
  - Nasopharyngitis [Recovered/Resolved]
  - Dizziness [Recovered/Resolved]
  - Depressed mood [Not Recovered/Not Resolved]
  - Alanine aminotransferase increased [Not Recovered/Not Resolved]
  - Incorrect dose administered [Unknown]

NARRATIVE: CASE EVENT DATE: 20120524
